FAERS Safety Report 9270624 (Version 1)
Quarter: 2013Q2

REPORT INFORMATION
  Report Type: Spontaneous
  Country: TW (occurrence: TW)
  Receive Date: 20130503
  Receipt Date: 20130503
  Transmission Date: 20140414
  Serious: Yes (Other)
  Sender: FDA-Public Use
  Company Number: TW-WATSON-2013-07482

PATIENT
  Age: 47 Year
  Sex: Male
  Weight: 48.5 kg

DRUGS (3)
  1. SODIUM VALPROATE (UNKNOWN) [Suspect]
     Indication: EPILEPSY
     Dosage: UNK
     Route: 065
  2. CEFTRIAXONE [Concomitant]
     Indication: EVIDENCE BASED TREATMENT
     Dosage: UNK
     Route: 042
  3. VANCOMYCIN [Concomitant]
     Indication: EVIDENCE BASED TREATMENT
     Dosage: UNK
     Route: 042

REACTIONS (2)
  - MELAS syndrome [Unknown]
  - Condition aggravated [Recovered/Resolved]
